FAERS Safety Report 7349312-2 (Version None)
Quarter: 2011Q1

REPORT INFORMATION
  Report Type: 
  Country: None (occurrence: None)
  Receive Date: 20110314
  Receipt Date: 20110228
  Transmission Date: 20110831
  Serious: Yes (Hospitalization)
  Sender: FDA-Public Use
  Company Number: JP-MYLANLABS-2011S1004098

PATIENT
  Age: 67 Year
  Sex: Male
  Weight: 67 kg

DRUGS (1)
  1. VALACICLOVIR [Suspect]
     Indication: HERPES ZOSTER
     Route: 048

REACTIONS (5)
  - TOXICITY TO VARIOUS AGENTS [None]
  - HALLUCINATION [None]
  - NEUROTOXICITY [None]
  - INSOMNIA [None]
  - EMOTIONAL DISTRESS [None]
